FAERS Safety Report 25905585 (Version 2)
Quarter: 2025Q4

REPORT INFORMATION
  Report Type: Spontaneous
  Country: JP (occurrence: JP)
  Receive Date: 20251010
  Receipt Date: 20251214
  Transmission Date: 20260118
  Serious: Yes (Death, Life-Threatening, Hospitalization, Other)
  Sender: MERCK SHARP & DOHME LLC
  Company Number: JP-009507513-2337560

PATIENT
  Age: 68 Year
  Sex: Male
  Weight: 52.3 kg

DRUGS (22)
  1. STROMECTOL [Suspect]
     Active Substance: IVERMECTIN
     Indication: Scabies
     Dosage: TIME INTERVAL: TOTAL
     Route: 048
     Dates: start: 20250905, end: 20250905
  2. STROMECTOL [Suspect]
     Active Substance: IVERMECTIN
     Indication: Scabies
     Dosage: UPON WAKING UP
     Route: 048
     Dates: start: 20250919, end: 20250919
  3. ALLOPURINOL [Concomitant]
     Active Substance: ALLOPURINOL
     Dosage: AFTER BREAKFAST
     Route: 048
  4. HERBESSER R Capsules 100mg [Concomitant]
     Dosage: AFTER BREAKFAST
     Route: 048
     Dates: end: 20250922
  5. HERBESSER R Capsules 100mg [Concomitant]
     Dosage: AFTER BREAKFAST
     Route: 048
     Dates: start: 20251008, end: 20251008
  6. Lansoprazole OD tablets 15mg [Concomitant]
     Dosage: AFTER BREAKFAST
     Route: 048
  7. Eperisone Hydrochloride tablets 50mg [Concomitant]
     Dosage: AFTER BREAKFAST
     Route: 048
  8. Azunol Ointment 0.033% [Concomitant]
     Dosage: COATING, DIFLUPREDNATE?AZUNOL MIX 1:4 FOR MIXING
     Route: 065
     Dates: end: 20250830
  9. Lioresal Tablets 5mg [Concomitant]
     Dosage: TIME INTERVAL: 0.33333333 DAYS: AFTER EVERY MEAL
     Route: 048
     Dates: end: 20250921
  10. Lioresal Tablets 5mg [Concomitant]
     Route: 048
     Dates: start: 20250921, end: 20250922
  11. Menesit Combination Tablets 100 [Concomitant]
     Dosage: TIME INTERVAL: 0.33333333 DAYS: MORNING 1.5 TABLETS, NOON 1 TABLET, EVENING 1.5 TABLETS, AFTER EA...
     Route: 048
  12. MAGNESIUM OXIDE [Concomitant]
     Active Substance: MAGNESIUM OXIDE
     Dosage: TIME INTERVAL: 0.33333333 DAYS: AFTER EACH MEAL
     Route: 048
     Dates: end: 20250921
  13. MAGNESIUM OXIDE [Concomitant]
     Active Substance: MAGNESIUM OXIDE
     Route: 048
     Dates: start: 20250921, end: 20250922
  14. MAGNESIUM OXIDE [Concomitant]
     Active Substance: MAGNESIUM OXIDE
     Route: 048
     Dates: start: 20251008, end: 20251008
  15. Epinastine hydrochloride tablets 20mg [Concomitant]
     Dosage: AFTER DINNER
     Route: 048
  16. Difluprednate ointment 0.05% [Concomitant]
     Dosage: COATING
     Route: 065
  17. Dutasteride Capsule 0.5mg AV [Concomitant]
     Dosage: AFTER BREAKFAST
     Route: 048
  18. Tsumura Hangeshashinto Extract Granules (Medical Use) [Concomitant]
     Dosage: AFTER BREAKFAST
     Route: 048
  19. TAMSULOSIN HYDROCHLORIDE [Concomitant]
     Active Substance: TAMSULOSIN HYDROCHLORIDE
     Dosage: AFTER DINNER
     Route: 048
  20. Sennoside tablets 12mg [Concomitant]
     Dosage: AFTER DINNER
     Route: 048
  21. Eliquis tablets 2.5mg [Concomitant]
     Dosage: AFTER BREAKFAST AND DINNER
     Route: 048
  22. Aspara potassium Powder 50% [Concomitant]
     Dosage: AFTER BREAKFAST AND DINNER
     Route: 048

REACTIONS (7)
  - Renal failure [Fatal]
  - Multiple organ dysfunction syndrome [Unknown]
  - Benign prostatic hyperplasia [Unknown]
  - Urinary tract infection [Unknown]
  - Cystitis haemorrhagic [Recovering/Resolving]
  - Sepsis [Fatal]
  - Hyperammonaemia [Unknown]

NARRATIVE: CASE EVENT DATE: 20250101
